FAERS Safety Report 26041451 (Version 1)
Quarter: 2025Q4

REPORT INFORMATION
  Report Type: Spontaneous
  Country: JP (occurrence: JP)
  Receive Date: 20251113
  Receipt Date: 20251113
  Transmission Date: 20260117
  Serious: Yes (Hospitalization)
  Sender: OTSUKA
  Company Number: JP-MMM-Otsuka-THYL978S

PATIENT
  Sex: Male

DRUGS (3)
  1. REXULTI [Suspect]
     Active Substance: BREXPIPRAZOLE
     Indication: Neuropsychological symptoms
     Dosage: 0.5 MG, DAILY
     Dates: start: 202506, end: 202508
  2. REXULTI [Suspect]
     Active Substance: BREXPIPRAZOLE
     Indication: Dementia Alzheimer^s type
  3. TIAPRIDE HYDROCHLORIDE [Concomitant]
     Active Substance: TIAPRIDE HYDROCHLORIDE
     Indication: Product used for unknown indication
     Dosage: UNK

REACTIONS (3)
  - Jaundice [Recovered/Resolved]
  - Liver function test abnormal [Unknown]
  - Restlessness [Unknown]

NARRATIVE: CASE EVENT DATE: 20250731
